FAERS Safety Report 7098273-2 (Version None)
Quarter: 2010Q4

REPORT INFORMATION
  Report Type: 
  Country: None (occurrence: None)
  Receive Date: 20101112
  Receipt Date: 20101103
  Transmission Date: 20110411
  Serious: Yes (Hospitalization)
  Sender: FDA-Public Use
  Company Number: AT-JNJFOC-20101101733

PATIENT
  Sex: Female
  Weight: 72.6 kg

DRUGS (5)
  1. GOLIMUMAB [Suspect]
     Indication: RHEUMATOID ARTHRITIS
     Route: 058
  2. MESALAMINE [Concomitant]
     Indication: COLITIS
     Route: 048
  3. SERETIDE [Concomitant]
     Indication: BRONCHITIS
     Dosage: DOSE=^4 HUBS^
  4. CELEBREX [Concomitant]
     Indication: RHEUMATOID ARTHRITIS
     Dosage: ^ON DEMAND^
  5. SIRDALUD [Concomitant]
     Indication: PAIN
     Route: 048

REACTIONS (3)
  - DEEP VEIN THROMBOSIS [None]
  - LEUKOPENIA [None]
  - PNEUMONIA [None]
